FAERS Safety Report 19062748 (Version 1)
Quarter: 2021Q1

REPORT INFORMATION
  Report Type: Report from Study
  Country: US (occurrence: US)
  Receive Date: 20210326
  Receipt Date: 20210326
  Transmission Date: 20210420
  Serious: Yes (Hospitalization)
  Sender: FDA-Public Use
  Company Number: US-EISAI MEDICAL RESEARCH-EC-2021-089777

PATIENT
  Age: 73 Year
  Sex: Female

DRUGS (2)
  1. LENVIMA [Suspect]
     Active Substance: LENVATINIB
     Indication: ENDOMETRIAL CANCER
     Route: 048
     Dates: start: 20210312, end: 20210321
  2. LENVIMA [Suspect]
     Active Substance: LENVATINIB
     Indication: METASTASES TO BONE

REACTIONS (8)
  - Asthenia [Unknown]
  - Confusional state [Unknown]
  - Arthralgia [Unknown]
  - Vomiting [Unknown]
  - Decreased appetite [Unknown]
  - Chest pain [Unknown]
  - Pain [Unknown]
  - Ketoacidosis [Unknown]

NARRATIVE: CASE EVENT DATE: 20210312
